FAERS Safety Report 9106110 (Version 1)
Quarter: 2013Q1

REPORT INFORMATION
  Report Type: Spontaneous
  Country: CA (occurrence: CA)
  Receive Date: 20130221
  Receipt Date: 20130221
  Transmission Date: 20140127
  Serious: Yes (Death)
  Sender: FDA-Public Use
  Company Number: CA-WATSON-2013-02626

PATIENT
  Age: 2 Year
  Sex: Male

DRUGS (9)
  1. MORPHINE SULFATE (UNKNOWN) [Suspect]
     Indication: SEDATION
     Dosage: UNK, UNKNOWN
     Route: 065
  2. HEPARIN SODIUM [Suspect]
     Indication: ANTICOAGULANT THERAPY
     Dosage: UNK, UNKNOWN
     Route: 065
  3. OXYGEN [Concomitant]
     Indication: PULSELESS ELECTRICAL ACTIVITY
     Dosage: UNK, UNKNOWN
     Route: 065
  4. PIPERACILLIN/TAZOBACTAM [Concomitant]
     Indication: EVIDENCE BASED TREATMENT
     Dosage: UNK, UNKNOWN
     Route: 065
  5. VANCOMYCIN [Concomitant]
     Indication: EVIDENCE BASED TREATMENT
     Dosage: UNK, UNKNOWN
     Route: 065
  6. TOBRAMYCIN [Concomitant]
     Indication: EVIDENCE BASED TREATMENT
     Dosage: UNK, UNKNOWN
     Route: 065
  7. LASIX                              /00032601/ [Concomitant]
     Indication: PULMONARY OEDEMA
     Dosage: 8 MG, 1 EVERY 8 HOURS
     Route: 065
  8. EPINEPHRINE [Concomitant]
     Indication: HYPOTENSION
     Dosage: UNK, UNKNOWN
     Route: 065
  9. NOREPINEPHRINE [Concomitant]
     Indication: HYPOTENSION
     Dosage: UNK, UNKNOWN
     Route: 065

REACTIONS (3)
  - Hypoxic-ischaemic encephalopathy [Fatal]
  - Cerebral haematoma [Fatal]
  - Procedural haemorrhage [Fatal]
